FAERS Safety Report 9515481 (Version 1)
Quarter: 2013Q1

REPORT INFORMATION
  Report Type: Spontaneous
  Country: US (occurrence: None)
  Receive Date: 20130305
  Receipt Date: 20130305
  Transmission Date: 20140127
  Serious: Yes (Other)
  Sender: FDA-Public Use
  Company Number: 163-21880-12114076

PATIENT
  Age: 65 Year
  Sex: Male

DRUGS (7)
  1. REVLIMID (LENALIDOMIDE) [Suspect]
     Indication: PLASMA CELL MYELOMA
     Route: 048
     Dates: start: 20100430, end: 20121129
  2. WARFARIN(WARFARIN) [Concomitant]
  3. DIGOXIN(DIGOXIN) [Concomitant]
  4. CARVEDILOL(CARVEDILOL) [Concomitant]
  5. DEXAMETHASONE [Concomitant]
  6. DIOVAN(VALSARTAN) [Concomitant]
  7. VELCADE(BORTEZOMIB) [Concomitant]

REACTIONS (1)
  - Plasma cell myeloma [None]
